FAERS Safety Report 9836763 (Version 1)
Quarter: 2013Q4

REPORT INFORMATION
  Report Type: Spontaneous
  Country: US (occurrence: None)
  Receive Date: 20131127
  Receipt Date: 20131127
  Transmission Date: 20140711
  Serious: Yes (Other)
  Sender: FDA-Public Use
  Company Number: 224187

PATIENT
  Sex: Female

DRUGS (1)
  1. PICATO GEL [Suspect]
     Indication: PRECANCEROUS SKIN LESION
     Dosage: ONCE DAILY FOR 3 DAYS, TOPICAL
     Dates: start: 20130927, end: 20130929

REACTIONS (6)
  - Application site erythema [None]
  - Application site exfoliation [None]
  - Application site scab [None]
  - Application site erosion [None]
  - Papule [None]
  - Erythema [None]
